FAERS Safety Report 4449956-1 (Version None)
Quarter: 2004Q3

REPORT INFORMATION
  Report Type: 
  Country: None (occurrence: None)
  Receive Date: 20040915
  Receipt Date: 20040809
  Transmission Date: 20050211
  Serious: Yes (Hospitalization, Other)
  Sender: FDA-Public Use
  Company Number: 200415996US

PATIENT
  Sex: Female
  Weight: 76 kg

DRUGS (7)
  1. ARAVA [Suspect]
     Indication: INTERSTITIAL LUNG DISEASE
     Route: 048
     Dates: start: 20030601, end: 20031002
  2. ARAVA [Suspect]
     Indication: RHEUMATOID ARTHRITIS
     Route: 048
     Dates: start: 20030601, end: 20031002
  3. PREDNISONE [Suspect]
     Indication: ANTIINFLAMMATORY THERAPY
     Route: 048
     Dates: start: 20030601, end: 20031002
  4. ZOLOFT [Concomitant]
     Dates: start: 19990101
  5. LIPITOR [Concomitant]
  6. ALLERGY SHOTS [Concomitant]
     Dates: start: 20020101
  7. SINGULAIR [Concomitant]
     Route: 048
     Dates: start: 20030101

REACTIONS (30)
  - ABDOMINAL DISTENSION [None]
  - ACTIVITIES OF DAILY LIVING IMPAIRED [None]
  - AMNESIA [None]
  - ASTHENIA [None]
  - BEDRIDDEN [None]
  - BLOOD GLUCOSE INCREASED [None]
  - CATARACT [None]
  - CELLULITIS [None]
  - CHOKING [None]
  - CONDITION AGGRAVATED [None]
  - CONFUSIONAL STATE [None]
  - DIFFICULTY IN WALKING [None]
  - DYSPNOEA [None]
  - ERYTHEMA [None]
  - FAT REDISTRIBUTION [None]
  - FATIGUE [None]
  - HEPATIC STEATOSIS [None]
  - HYPERHIDROSIS [None]
  - HYPERTENSION [None]
  - IMPAIRED WORK ABILITY [None]
  - MUSCULAR WEAKNESS [None]
  - MYOPATHY [None]
  - NEUROPATHY [None]
  - PANCREATITIS [None]
  - SKIN DISORDER [None]
  - SLEEP DISORDER [None]
  - SPINAL DISORDER [None]
  - VEIN DISORDER [None]
  - VISION BLURRED [None]
  - WEIGHT INCREASED [None]
